FAERS Safety Report 10062007 (Version 1)
Quarter: 2014Q2

REPORT INFORMATION
  Report Type: Spontaneous
  Country: GB (occurrence: None)
  Receive Date: 20140403
  Receipt Date: 20140403
  Transmission Date: 20141212
  Serious: Yes (Life-Threatening, Other)
  Sender: FDA-Public Use
  Company Number: GB-20140015

PATIENT
  Age: 61 Year
  Sex: Female

DRUGS (2)
  1. LIPIODOL (ETHIODIZED OIL), UNKNOWN [Suspect]
     Indication: HEPATIC ARTERY EMBOLISM
  2. CYANOACRYLATE GLUE [Suspect]
     Indication: HEPATIC ARTERY EMBOLISM

REACTIONS (5)
  - Biliary tract disorder [None]
  - Ischaemia [None]
  - Cholangitis infective [None]
  - Candida infection [None]
  - Liver abscess [None]
